FAERS Safety Report 25983633 (Version 1)
Quarter: 2025Q4

REPORT INFORMATION
  Report Type: Spontaneous
  Country: US (occurrence: US)
  Receive Date: 20251031
  Receipt Date: 20251031
  Transmission Date: 20260118
  Serious: Yes (Other)
  Sender: HIKMA
  Company Number: US-HIKMA PHARMACEUTICALS USA INC.-US-H14001-25-11428

PATIENT
  Age: 36 Year

DRUGS (1)
  1. CHLORPROMAZINE [Suspect]
     Active Substance: CHLORPROMAZINE
     Indication: Inappropriate antidiuretic hormone secretion
     Dosage: 25 MG WAS GIVEN THE FIRST DAY
     Route: 065

REACTIONS (4)
  - Akathisia [Recovered/Resolved]
  - Altered state of consciousness [Recovered/Resolved]
  - Urinary retention [Recovered/Resolved]
  - Drug ineffective [Recovered/Resolved]
